FAERS Safety Report 8505854 (Version 4)
Quarter: 2012Q4

REPORT INFORMATION
  Report Type: Report from Study
  Country: JP (occurrence: JP)
  Receive Date: 20120412
  Receipt Date: 20121017
  Transmission Date: 20130627
  Serious: Yes (Hospitalization)
  Sender: FDA-Public Use
  Company Number: JP-GILEAD-2012-0053494

PATIENT
  Age: 61 Year
  Sex: Female

DRUGS (11)
  1. AMBRISENTAN [Suspect]
     Indication: PULMONARY ARTERIAL HYPERTENSION
     Dosage: 2.5MG Three times per day
     Route: 048
     Dates: start: 20111128, end: 20120608
  2. ADCIRCA [Suspect]
     Indication: PULMONARY ARTERIAL HYPERTENSION
     Dosage: 20MG Twice per day
     Route: 048
     Dates: end: 20120608
  3. PREDNISOLONE [Concomitant]
     Dosage: 5MG Per day
     Route: 048
  4. TAKEPRON [Concomitant]
     Dosage: 15MG Per day
     Route: 048
  5. TAKEPRON [Concomitant]
     Dosage: 15MG Per day
     Route: 048
     Dates: end: 20120608
  6. PREDONINE                          /00016201/ [Concomitant]
     Dosage: 5MG Per day
     Route: 048
     Dates: end: 20120608
  7. HOKUNALIN                          /00654901/ [Concomitant]
     Route: 062
     Dates: end: 20120608
  8. PREDONINE                          /00016201/ [Concomitant]
     Dosage: 2.5MG Twice per day
     Route: 048
     Dates: end: 20120608
  9. HOKUNALIN                          /00654902/ [Concomitant]
     Route: 062
     Dates: end: 20120608
  10. PREDONINE                          /00016201/ [Concomitant]
     Dosage: 2.5MG Twice per day
     Route: 048
     Dates: end: 20120608
  11. HOKUNALIN                          /00654901/ [Concomitant]
     Route: 062
     Dates: end: 20120608

REACTIONS (2)
  - Epistaxis [Recovered/Resolved]
  - Epistaxis [Recovered/Resolved]
